FAERS Safety Report 6753841-X (Version None)
Quarter: 2010Q2

REPORT INFORMATION
  Report Type: 
  Country: None (occurrence: None)
  Receive Date: 20100601
  Receipt Date: 20100514
  Transmission Date: 20101027
  Serious: No
  Sender: FDA-Public Use
  Company Number: 2010RR-33692

PATIENT
  Age: 77 Year
  Sex: Male

DRUGS (1)
  1. CIPROFLOXACIN [Suspect]
     Indication: CHOLANGITIS
     Dosage: 400 MG, TWICE DAILY PARENTERAL
     Route: 051

REACTIONS (6)
  - CARDIAC HYPERTROPHY [None]
  - ELECTROCARDIOGRAM QRS COMPLEX PROLONGED [None]
  - SYNCOPE [None]
  - TACHYCARDIA [None]
  - TONIC CLONIC MOVEMENTS [None]
  - TORSADE DE POINTES [None]
